FAERS Safety Report 19471615 (Version 4)
Quarter: 2021Q3

REPORT INFORMATION
  Report Type: Spontaneous
  Country: FR (occurrence: FR)
  Receive Date: 20210629
  Receipt Date: 20210709
  Transmission Date: 20211014
  Serious: Yes (Hospitalization)
  Sender: FDA-Public Use
  Company Number: FR-PUMA BIOTECHNOLOGY, INC.-2021-PUM-FR003520

PATIENT

DRUGS (2)
  1. NERLYNX [Suspect]
     Active Substance: NERATINIB
     Indication: PRODUCT USED FOR UNKNOWN INDICATION
     Dosage: UNK MG, DAILY
     Route: 065
  2. NERLYNX [Suspect]
     Active Substance: NERATINIB
     Dosage: UNK MG, DAILY
     Route: 065

REACTIONS (1)
  - Pleurisy [Recovered/Resolved]
